FAERS Safety Report 5970149-0 (Version None)
Quarter: 2008Q4

REPORT INFORMATION
  Report Type: 
  Country: None (occurrence: None)
  Receive Date: 20081126
  Receipt Date: 20081010
  Transmission Date: 20090506
  Serious: No
  Sender: FDA-Public Use
  Company Number: US-ABBOTT-08P-163-0481528-00

PATIENT
  Sex: Female

DRUGS (4)
  1. SIMCOR [Suspect]
     Indication: DRUG USE FOR UNKNOWN INDICATION
     Dosage: 500/20
     Dates: start: 20080930, end: 20081005
  2. METOPROLOL TARTRATE [Concomitant]
     Indication: DRUG USE FOR UNKNOWN INDICATION
  3. QUINAPRIL HCL [Concomitant]
     Indication: DRUG USE FOR UNKNOWN INDICATION
  4. CALCIUM [Concomitant]
     Indication: DRUG USE FOR UNKNOWN INDICATION

REACTIONS (2)
  - DIARRHOEA [None]
  - FEELING ABNORMAL [None]
